FAERS Safety Report 6973311-3 (Version None)
Quarter: 2010Q3

REPORT INFORMATION
  Report Type: 
  Country: None (occurrence: None)
  Receive Date: 20100909
  Receipt Date: 20100830
  Transmission Date: 20110219
  Serious: Yes (Hospitalization)
  Sender: FDA-Public Use
  Company Number: US-PFIZER INC-2010109621

PATIENT
  Sex: Female

DRUGS (1)
  1. ALDACTONE [Suspect]
     Indication: FLUID RETENTION
     Dosage: UNK
     Dates: start: 20100801, end: 20100830

REACTIONS (1)
  - THROMBOCYTOPENIA [None]
